FAERS Safety Report 6334548-X (Version None)
Quarter: 2009Q3

REPORT INFORMATION
  Report Type: 
  Country: None (occurrence: None)
  Receive Date: 20090831
  Receipt Date: 20090819
  Transmission Date: 20100115
  Serious: Yes (Other)
  Sender: FDA-Public Use
  Company Number: PHHY2009MX35086

PATIENT
  Sex: Female

DRUGS (2)
  1. EXFORGE [Suspect]
     Indication: HYPERTENSION
     Dosage: 1 TABLET (160/5 MG) PER DAY
     Dates: start: 20050101
  2. EXFORGE [Suspect]
     Dosage: 1.5 TABLET (160/5 MG) PER DAY
     Dates: start: 20090816

REACTIONS (2)
  - EYE HAEMORRHAGE [None]
  - HYPERTENSION [None]
